FAERS Safety Report 5746502-7 (Version None)
Quarter: 2008Q2

REPORT INFORMATION
  Report Type: 
  Country: None (occurrence: None)
  Receive Date: 20080522
  Receipt Date: 20080512
  Transmission Date: 20081010
  Serious: Yes (Hospitalization, Other)
  Sender: FDA-Public Use
  Company Number: PHHY2008GB07059

PATIENT
  Age: 9 Year
  Sex: Male

DRUGS (2)
  1. OXYMETHOLONE [Concomitant]
     Indication: CONGENITAL APLASTIC ANAEMIA
     Dosage: 50 MG/DAY
     Route: 048
     Dates: start: 20060101
  2. EXJADE [Suspect]
     Indication: IRON OVERLOAD
     Dosage: 725 MG/DAY
     Route: 048
     Dates: start: 20080421, end: 20080430

REACTIONS (5)
  - BLISTER [None]
  - BODY TEMPERATURE INCREASED [None]
  - MEASLES [None]
  - RASH GENERALISED [None]
  - URTICARIA [None]
